FAERS Safety Report 15585298 (Version 4)
Quarter: 2018Q4

REPORT INFORMATION
  Report Type: Spontaneous
  Country: JP (occurrence: JP)
  Receive Date: 20181102
  Receipt Date: 20181129
  Transmission Date: 20190205
  Serious: Yes (Other)
  Sender: FDA-Public Use
  Company Number: PHJP2018JP018615

PATIENT
  Age: 26 Year
  Sex: Female
  Weight: 38.8 kg

DRUGS (7)
  1. BUTIOL//DEXAMETHASONE [Suspect]
     Active Substance: DEXAMETHASONE
     Indication: HAEMOPHAGOCYTIC LYMPHOHISTIOCYTOSIS
     Dosage: 10 MG/M2, UNK
     Route: 065
  2. ETOPOSIDE. [Suspect]
     Active Substance: ETOPOSIDE
     Indication: HAEMOPHAGOCYTIC LYMPHOHISTIOCYTOSIS
  3. BUTIOL//DEXAMETHASONE [Suspect]
     Active Substance: DEXAMETHASONE
     Dosage: 2.5 MG/M2, UNK
     Route: 065
  4. BUTIOL//DEXAMETHASONE [Suspect]
     Active Substance: DEXAMETHASONE
     Indication: HISTIOCYTIC NECROTISING LYMPHADENITIS
     Dosage: 5 MG/M2, UNK
     Route: 065
  5. CICLOSPORIN [Suspect]
     Active Substance: CYCLOSPORINE
     Indication: HAEMOPHAGOCYTIC LYMPHOHISTIOCYTOSIS
  6. CICLOSPORIN [Suspect]
     Active Substance: CYCLOSPORINE
     Indication: HISTIOCYTIC NECROTISING LYMPHADENITIS
     Dosage: 200 MG, UNK
     Route: 065
  7. ETOPOSIDE. [Suspect]
     Active Substance: ETOPOSIDE
     Indication: HISTIOCYTIC NECROTISING LYMPHADENITIS
     Dosage: UNK
     Route: 065

REACTIONS (3)
  - Product use in unapproved indication [Unknown]
  - Interstitial lung disease [Unknown]
  - Serum ferritin increased [Unknown]
